FAERS Safety Report 6683910-4 (Version None)
Quarter: 2010Q2

REPORT INFORMATION
  Report Type: 
  Country: None (occurrence: None)
  Receive Date: 20100416
  Receipt Date: 20100408
  Transmission Date: 20101027
  Serious: Yes (Other)
  Sender: FDA-Public Use
  Company Number: US-PFIZER INC-2009190026

PATIENT
  Sex: Female
  Weight: 77.098 kg

DRUGS (3)
  1. MEDROXYPROGESTERONE ACETATE [Suspect]
     Indication: CONTRACEPTION
     Dosage: 150 MG, UNK
  2. MEDROXYPROGESTERONE ACETATE [Suspect]
     Dosage: UNK
  3. GABAPENTIN [Concomitant]
     Dosage: 100 MG, 3X/DAY

REACTIONS (3)
  - BLOOD URINE PRESENT [None]
  - ENDOMETRIAL DISORDER [None]
  - METRORRHAGIA [None]
